FAERS Safety Report 7879127-8 (Version None)
Quarter: 2011Q4

REPORT INFORMATION
  Report Type: 
  Country: None (occurrence: None)
  Receive Date: 20111101
  Receipt Date: 20111027
  Transmission Date: 20120403
  Serious: Yes (Hospitalization, Other)
  Sender: FDA-Public Use
  Company Number: US-BAYER-2011-105053

PATIENT
  Sex: Female

DRUGS (1)
  1. MIRENA [Suspect]
     Indication: CONTRACEPTION
     Dosage: DAILY DOSE 20 ?G
     Route: 015
     Dates: start: 20100601, end: 20110223

REACTIONS (5)
  - BLIGHTED OVUM [None]
  - SYNCOPE [None]
  - DYSPAREUNIA [None]
  - PELVIC PAIN [None]
  - PREGNANCY [None]
